FAERS Safety Report 13102185 (Version 1)
Quarter: 2017Q1

REPORT INFORMATION
  Report Type: Spontaneous
  Country: US (occurrence: US)
  Receive Date: 20170110
  Receipt Date: 20170110
  Transmission Date: 20170428
  Serious: Yes (Hospitalization, Other)
  Sender: FDA-Public Use
  Company Number: US-MYLANLABS-2017M1000250

PATIENT

DRUGS (2)
  1. LEDIPASVIR W/SOFOSBUVIR [Interacting]
     Active Substance: LEDIPASVIR\SOFOSBUVIR
     Indication: CHRONIC HEPATITIS C
     Route: 065
     Dates: start: 2015
  2. WARFARIN [Suspect]
     Active Substance: WARFARIN
     Indication: ATRIAL FIBRILLATION
     Dosage: 30MG/WEEK
     Route: 065
     Dates: start: 2011

REACTIONS (4)
  - Drug interaction [Recovered/Resolved]
  - Coagulation time prolonged [Unknown]
  - Coagulation time shortened [Recovered/Resolved]
  - Upper gastrointestinal haemorrhage [Unknown]
